FAERS Safety Report 10216513 (Version 1)
Quarter: 2014Q2

REPORT INFORMATION
  Report Type: Spontaneous
  Country: US (occurrence: US)
  Receive Date: 20140604
  Receipt Date: 20140604
  Transmission Date: 20141212
  Serious: No
  Sender: FDA-Public Use
  Company Number: US-PFIZER INC-2014150503

PATIENT
  Age: 56 Year
  Sex: Female
  Weight: 49.89 kg

DRUGS (2)
  1. LEVOTHYROXINE SODIUM [Suspect]
     Dosage: 0.125 MG, UNK
  2. LEVOTHYROXINE SODIUM [Suspect]
     Dosage: 0.1 MG, UNK

REACTIONS (1)
  - Weight decreased [Not Recovered/Not Resolved]
